FAERS Safety Report 7592493-6 (Version None)
Quarter: 2011Q3

REPORT INFORMATION
  Report Type: 
  Country: None (occurrence: None)
  Receive Date: 20110706
  Receipt Date: 20110627
  Transmission Date: 20111222
  Serious: Yes (Other)
  Sender: FDA-Public Use
  Company Number: US-BAYER-2011-029571

PATIENT
  Age: 25 Year
  Sex: Female
  Weight: 108.84 kg

DRUGS (4)
  1. ZOLOFT [Concomitant]
     Indication: ORAL CONTRACEPTION
     Dosage: UNK
     Dates: start: 20051001, end: 20080325
  2. AMOXICILLIN [Concomitant]
     Dosage: UNK UNK, PRN
  3. ALBUTEROL SULFATE AUTOHALER [Concomitant]
  4. YASMIN [Suspect]
     Indication: ORAL CONTRACEPTION
     Dosage: UNK
     Dates: start: 20051001, end: 20080401

REACTIONS (4)
  - GALLBLADDER DISORDER [None]
  - INJURY [None]
  - CHOLECYSTITIS CHRONIC [None]
  - PAIN [None]
